FAERS Safety Report 12776795 (Version 1)
Quarter: 2016Q3

REPORT INFORMATION
  Report Type: Report from Study
  Country: AR (occurrence: AR)
  Receive Date: 20160923
  Receipt Date: 20160923
  Transmission Date: 20161109
  Serious: Yes (Death, Hospitalization)
  Sender: FDA-Public Use
  Company Number: AR-ABBVIE-16P-007-1735879-00

PATIENT
  Age: 73 Year
  Sex: Female

DRUGS (1)
  1. ZEMPLAR [Suspect]
     Active Substance: PARICALCITOL
     Indication: HYPERPARATHYROIDISM SECONDARY
     Route: 042
     Dates: start: 20140601

REACTIONS (4)
  - Cardio-respiratory arrest [Fatal]
  - Head injury [Fatal]
  - General physical health deterioration [Fatal]
  - Fall [Unknown]

NARRATIVE: CASE EVENT DATE: 20160820
